FAERS Safety Report 7644721-6 (Version None)
Quarter: 2011Q3

REPORT INFORMATION
  Report Type: 
  Country: None (occurrence: None)
  Receive Date: 20110729
  Receipt Date: 20110728
  Transmission Date: 20111222
  Serious: Yes (Death)
  Sender: FDA-Public Use
  Company Number: NL-ACTELION-A-CH2011-44233

PATIENT
  Sex: Female
  Weight: 61 kg

DRUGS (5)
  1. FUROSEMIDE [Concomitant]
  2. SPIRONOLACTONE [Concomitant]
  3. TRACLEER [Suspect]
     Indication: PULMONARY ARTERIAL HYPERTENSION
     Dosage: 125 MG, BID
     Route: 048
     Dates: end: 20110128
  4. OMEPRAZOLE [Concomitant]
  5. SILDENAFIL CITRATE [Concomitant]

REACTIONS (3)
  - DISEASE PROGRESSION [None]
  - PULMONARY ARTERIAL HYPERTENSION [None]
  - RIGHT VENTRICULAR FAILURE [None]
